FAERS Safety Report 4511257-0 (Version None)
Quarter: 2004Q4

REPORT INFORMATION
  Report Type: 
  Country: None (occurrence: None)
  Receive Date: 20041122
  Receipt Date: 20020805
  Transmission Date: 20050328
  Serious: Yes (Other)
  Sender: FDA-Public Use
  Company Number: 2004BL007417

PATIENT
  Age: 68 Year
  Sex: Male

DRUGS (10)
  1. CYCLOPENTOLATE HCL [Suspect]
     Dosage: OPHTHALMIC
     Route: 047
  2. MINIMS PHENYLEPHRINE HYDROCHLORIDE 2.5% [Suspect]
     Dosage: OPHTHALMIC
     Route: 047
  3. ISTIN [Concomitant]
  4. ASPIRIN [Concomitant]
  5. ATORVASTATIN [Concomitant]
  6. METOPROLOL [Concomitant]
  7. PERSANTIN [Concomitant]
  8. RETART VALSARAN [Concomitant]
  9. ARTHROTEC [Concomitant]
  10. LOSEC [Concomitant]

REACTIONS (5)
  - COLD SWEAT [None]
  - DIZZINESS [None]
  - HYPOTENSION [None]
  - NAUSEA [None]
  - VENTRICULAR ARRHYTHMIA [None]
